FAERS Safety Report 5203983-5 (Version None)
Quarter: 2007Q1

REPORT INFORMATION
  Report Type: 
  Country: None (occurrence: None)
  Receive Date: 20070105
  Receipt Date: 20061227
  Transmission Date: 20070707
  Serious: Yes (Hospitalization)
  Sender: FDA-Public Use
  Company Number: 0610-755

PATIENT
  Age: 87 Year
  Sex: Female
  Weight: 40.8237 kg

DRUGS (4)
  1. DUONEB [Suspect]
     Indication: CHRONIC OBSTRUCTIVE PULMONARY DISEASE
     Dosage: AS NEEDED-NEBULIZER
     Dates: start: 20060901
  2. DUONEB [Suspect]
     Indication: EMPHYSEMA
     Dosage: AS NEEDED-NEBULIZER
     Dates: start: 20060901
  3. DUONEB [Suspect]
     Indication: LUNG NEOPLASM MALIGNANT
     Dosage: AS NEEDED-NEBULIZER
     Dates: start: 20060901
  4. NIFEDIPINE [Concomitant]

REACTIONS (4)
  - AGITATION [None]
  - CONVULSION [None]
  - DYSPNOEA [None]
  - TREMOR [None]
